FAERS Safety Report 4333182-0 (Version None)
Quarter: 2004Q1

REPORT INFORMATION
  Report Type: 
  Country: None (occurrence: None)
  Receive Date: 20040330
  Receipt Date: 20010904
  Transmission Date: 20041129
  Serious: Yes (Hospitalization)
  Sender: FDA-Public Use
  Company Number: 2001IC000052

PATIENT
  Age: 66 Year
  Sex: Female
  Weight: 78.6 kg

DRUGS (14)
  1. FLUOROURACIL [Suspect]
     Dosage: SEE IMAGE
     Route: 042
     Dates: start: 20001030, end: 20001103
  2. FLUOROURACIL [Suspect]
     Dosage: SEE IMAGE
     Route: 042
     Dates: start: 20001127, end: 20001201
  3. FLUOROURACIL [Suspect]
     Dosage: SEE IMAGE
     Route: 042
     Dates: end: 20010104
  4. LEUCOVORIN CALCIUM [Suspect]
     Dosage: SEE IMAGE
     Route: 042
     Dates: start: 20001030, end: 20001103
  5. LEUCOVORIN CALCIUM [Suspect]
     Dosage: SEE IMAGE
     Route: 042
     Dates: start: 20001127, end: 20001201
  6. LEUCOVORIN CALCIUM [Suspect]
     Dosage: SEE IMAGE
     Route: 042
     Dates: end: 20010104
  7. METOCLOPRAMIDE [Concomitant]
  8. FERROUS GLUCONATE [Concomitant]
  9. CO-AMILOFRUSE [Concomitant]
  10. PYRIDOXINE [Concomitant]
  11. FRUMIL [Concomitant]
  12. SLOW-K [Concomitant]
  13. ENSURE PLUS [Concomitant]
  14. FLUOCXETINE [Concomitant]

REACTIONS (9)
  - ABDOMINAL PAIN [None]
  - CULTURE URINE POSITIVE [None]
  - DECREASED APPETITE [None]
  - DIARRHOEA [None]
  - DRY MOUTH [None]
  - LETHARGY [None]
  - NEUTROPENIA [None]
  - URINARY TRACT INFECTION [None]
  - VOMITING [None]
